FAERS Safety Report 17608815 (Version 1)
Quarter: 2020Q2

REPORT INFORMATION
  Report Type: Spontaneous
  Country: CA (occurrence: CA)
  Receive Date: 20200401
  Receipt Date: 20200401
  Transmission Date: 20200713
  Serious: Yes (Other)
  Sender: FDA-Public Use
  Company Number: CA-TEVA-2020-CA-1211156

PATIENT
  Age: 72 Year
  Sex: Male

DRUGS (1)
  1. TEVA-CLOBAZAM 10MG [Suspect]
     Active Substance: CLOBAZAM
     Dosage: 10 MILLIGRAM DAILY;

REACTIONS (12)
  - Pollakiuria [Unknown]
  - Pyrexia [Unknown]
  - Nightmare [Unknown]
  - White blood cell count decreased [Unknown]
  - Hypertension [Unknown]
  - Hyperhidrosis [Unknown]
  - Irritability [Unknown]
  - Epistaxis [Unknown]
  - Seizure [Unknown]
  - Pneumonia [Unknown]
  - Middle insomnia [Unknown]
  - Rash [Unknown]
